FAERS Safety Report 6712044-5 (Version None)
Quarter: 2010Q2

REPORT INFORMATION
  Report Type: 
  Country: None (occurrence: None)
  Receive Date: 20100505
  Receipt Date: 20100427
  Transmission Date: 20101027
  Serious: Yes (Other)
  Sender: FDA-Public Use
  Company Number: DE-SANOFI-AVENTIS-2010SA025248

PATIENT

DRUGS (2)
  1. ELOXATIN [Suspect]
     Indication: DRUG USE FOR UNKNOWN INDICATION
     Route: 041
  2. ELOXATIN [Suspect]
     Route: 041

REACTIONS (2)
  - LIPASE INCREASED [None]
  - TRANSAMINASES INCREASED [None]
